FAERS Safety Report 20684071 (Version 2)
Quarter: 2022Q2

REPORT INFORMATION
  Report Type: Report from Study
  Country: TW (occurrence: TW)
  Receive Date: 20220407
  Receipt Date: 20220426
  Transmission Date: 20220721
  Serious: Yes (Other)
  Sender: FDA-Public Use
  Company Number: TW-ELI_LILLY_AND_COMPANY-TW202203012694

PATIENT
  Age: 41 Year
  Sex: Female
  Weight: 64 kg

DRUGS (7)
  1. SELPERCATINIB [Suspect]
     Active Substance: SELPERCATINIB
     Indication: Non-small cell lung cancer
     Dosage: UNK, UNKNOWN
     Route: 065
     Dates: start: 202004, end: 202005
  2. SELPERCATINIB [Suspect]
     Active Substance: SELPERCATINIB
     Dosage: 80 MG, BID
     Route: 065
     Dates: start: 202006, end: 202105
  3. SELPERCATINIB [Suspect]
     Active Substance: SELPERCATINIB
     Dosage: 80 MG, BID
     Route: 065
  4. ALIMTA [Suspect]
     Active Substance: PEMETREXED DISODIUM
     Indication: Non-small cell lung cancer
     Dosage: UNK, UNKNOWN
     Route: 065
  5. CYRAMZA [Suspect]
     Active Substance: RAMUCIRUMAB
     Indication: Non-small cell lung cancer
     Dosage: UNK UNK, UNKNOWN
     Route: 065
  6. CISPLATIN [Concomitant]
     Active Substance: CISPLATIN
     Indication: Non-small cell lung cancer
  7. ALECTINIB [Concomitant]
     Active Substance: ALECTINIB
     Indication: Non-small cell lung cancer
     Dosage: UNK
     Dates: start: 202004, end: 202005

REACTIONS (4)
  - Malignant neoplasm progression [Recovering/Resolving]
  - Drug ineffective [Unknown]
  - Ascites [Unknown]
  - Off label use [Unknown]
